FAERS Safety Report 17716146 (Version 3)
Quarter: 2020Q2

REPORT INFORMATION
  Report Type: Report from Study
  Country: None (occurrence: CO)
  Receive Date: 20200428
  Receipt Date: 20200605
  Transmission Date: 20200714
  Serious: Yes (Hospitalization, Other)
  Sender: FDA-Public Use
  Company Number: CO-ABBVIE-20K-036-3381437-00

PATIENT
  Age: 52 Year
  Sex: Male
  Weight: 94 kg

DRUGS (1)
  1. HUMIRA [Suspect]
     Active Substance: ADALIMUMAB
     Indication: HIDRADENITIS
     Route: 058
     Dates: start: 20180321, end: 20200406

REACTIONS (8)
  - Disability [Unknown]
  - Acne [Not Recovered/Not Resolved]
  - Hidradenitis [Not Recovered/Not Resolved]
  - Furuncle [Not Recovered/Not Resolved]
  - Intestinal obstruction [Recovering/Resolving]
  - Procedural pain [Unknown]
  - Postoperative wound infection [Recovering/Resolving]
  - Investigation abnormal [Unknown]

NARRATIVE: CASE EVENT DATE: 2020
